FAERS Safety Report 6075458-5 (Version None)
Quarter: 2009Q1

REPORT INFORMATION
  Report Type: 
  Country: None (occurrence: None)
  Receive Date: 20090212
  Receipt Date: 20090206
  Transmission Date: 20090719
  Serious: Yes (Other)
  Sender: FDA-Public Use
  Company Number: A0768044A

PATIENT
  Sex: Female

DRUGS (9)
  1. ADVAIR DISKUS 100/50 [Suspect]
     Indication: CHRONIC OBSTRUCTIVE PULMONARY DISEASE
     Dosage: 1PUFF TWICE PER DAY
     Route: 055
     Dates: end: 20090205
  2. SEREVENT [Suspect]
     Indication: CHRONIC OBSTRUCTIVE PULMONARY DISEASE
     Dosage: 1PUFF TWICE PER DAY
     Route: 055
     Dates: end: 20090101
  3. NASAL IRRIGATION [Concomitant]
  4. UNKNOWN MEDICATION [Concomitant]
  5. PREDNISONE [Concomitant]
  6. FLOVENT [Concomitant]
  7. DILTIAZEM [Concomitant]
  8. LEVOTHYROXINE SODIUM [Concomitant]
  9. WARFARIN SODIUM [Concomitant]

REACTIONS (4)
  - APHONIA [None]
  - ATRIAL FIBRILLATION [None]
  - DYSPHONIA [None]
  - DYSPNOEA [None]
